FAERS Safety Report 24796824 (Version 4)
Quarter: 2025Q2

REPORT INFORMATION
  Report Type: Report from Study
  Country: CN (occurrence: CN)
  Receive Date: 20250101
  Receipt Date: 20250611
  Transmission Date: 20250716
  Serious: Yes (Hospitalization, Other)
  Sender: AMGEN
  Company Number: CN-AMGEN-CHNNI2024119360

PATIENT
  Age: 65 Year
  Sex: Female
  Weight: 60 kg

DRUGS (5)
  1. DENOSUMAB [Suspect]
     Active Substance: DENOSUMAB
     Indication: Osteoporosis postmenopausal
     Route: 058
     Dates: start: 20230726
  2. ALFACALCIDOL [Concomitant]
     Active Substance: ALFACALCIDOL
     Route: 048
     Dates: start: 20170606
  3. PIROXICAM [Concomitant]
     Active Substance: PIROXICAM
     Route: 050
     Dates: start: 20240613
  4. VITAMIN D2 [Concomitant]
     Active Substance: ERGOCALCIFEROL
     Route: 030
     Dates: start: 20240620, end: 20240620
  5. VITAMIN D2 [Concomitant]
     Active Substance: ERGOCALCIFEROL
     Route: 048
     Dates: start: 20240115

REACTIONS (2)
  - Thoracic vertebral fracture [Recovered/Resolved]
  - Sternal fracture [Not Recovered/Not Resolved]

NARRATIVE: CASE EVENT DATE: 20240413
